FAERS Safety Report 4335975-2 (Version None)
Quarter: 2004Q1

REPORT INFORMATION
  Report Type: 
  Country: None (occurrence: None)
  Receive Date: 20040329
  Receipt Date: 20031223
  Transmission Date: 20041129
  Serious: No
  Sender: FDA-Public Use
  Company Number: USA031255311

PATIENT
  Age: 12 Year
  Sex: Female
  Weight: 45 kg

DRUGS (1)
  1. STRATTERA [Suspect]
     Indication: ATTENTION DEFICIT/HYPERACTIVITY DISORDER
     Dosage: 25 MG/IN THE MORNING
     Dates: start: 20031218, end: 20031218

REACTIONS (5)
  - COMMUNICATION DISORDER [None]
  - CRYING [None]
  - DISORIENTATION [None]
  - SOMNOLENCE [None]
  - THINKING ABNORMAL [None]
